FAERS Safety Report 6496802-0 (Version None)
Quarter: 2009Q4

REPORT INFORMATION
  Report Type: 
  Country: None (occurrence: None)
  Receive Date: 20091125
  Receipt Date: 20090402
  Transmission Date: 20100525
  Serious: Yes (Other)
  Sender: FDA-Public Use
  Company Number: 2009BH005328

PATIENT
  Age: 41 Year
  Sex: Male

DRUGS (13)
  1. DIANEAL [Suspect]
     Indication: PERITONEAL DIALYSIS
     Dosage: 10 L;EVERY DAY; IP
     Route: 033
     Dates: start: 20080101
  2. ASPIRIN [Concomitant]
  3. CARDIZEM [Concomitant]
  4. CLONIDINE [Concomitant]
  5. EPOGEN [Concomitant]
  6. LIPITOR [Concomitant]
  7. LISINOPRIL [Concomitant]
  8. ROBINUL [Concomitant]
  9. PROCARDIA [Concomitant]
  10. RENVELA [Concomitant]
  11. SENSIPAR [Concomitant]
  12. TRAMADOL [Concomitant]
  13. ZEMPLAR [Concomitant]

REACTIONS (2)
  - PERITONEAL DIALYSIS COMPLICATION [None]
  - PERITONITIS BACTERIAL [None]
